FAERS Safety Report 26145632 (Version 1)
Quarter: 2025Q4

REPORT INFORMATION
  Report Type: Spontaneous
  Country: US (occurrence: None)
  Receive Date: 20251210
  Receipt Date: 20251210
  Transmission Date: 20260118
  Serious: Yes (Life-Threatening, Hospitalization, Disabling)
  Sender: FDA-CTU
  Company Number: None

PATIENT
  Sex: Female

DRUGS (16)
  1. INVOKANA [Suspect]
     Active Substance: CANAGLIFLOZIN
     Indication: Diabetes mellitus
  2. INVOKANA [Suspect]
     Active Substance: CANAGLIFLOZIN
     Indication: Blood pressure increased
  3. JANUVIA [Suspect]
     Active Substance: SITAGLIPTIN PHOSPHATE
     Indication: Diabetes mellitus
  4. JANUVIA [Suspect]
     Active Substance: SITAGLIPTIN PHOSPHATE
     Indication: Blood pressure increased
  5. JARDIANCE [Suspect]
     Active Substance: EMPAGLIFLOZIN
  6. LISINOPRIL [Suspect]
     Active Substance: LISINOPRIL
  7. OLMESARTAN [Suspect]
     Active Substance: OLMESARTAN
  8. CARVEDILOL [Suspect]
     Active Substance: CARVEDILOL
  9. OZEMPIC [Suspect]
     Active Substance: SEMAGLUTIDE
     Indication: Diabetes mellitus
  10. OZEMPIC [Suspect]
     Active Substance: SEMAGLUTIDE
     Indication: Blood pressure increased
  11. HERBALS\TURMERIC [Concomitant]
     Active Substance: HERBALS\TURMERIC
  12. GARLIC [Concomitant]
     Active Substance: GARLIC
  13. IRON [Concomitant]
     Active Substance: IRON
  14. VITAMIN C [Concomitant]
     Active Substance: ASCORBIC ACID
  15. LYSINE [Concomitant]
     Active Substance: LYSINE
  16. SIMVASTATIN [Suspect]
     Active Substance: SIMVASTATIN

REACTIONS (23)
  - Visual impairment [None]
  - Bedridden [None]
  - Asthenia [None]
  - Peripheral vascular disorder [None]
  - Movement disorder [None]
  - Hemiparesis [None]
  - Myalgia [None]
  - Arthralgia [None]
  - Lymphatic disorder [None]
  - Swelling [None]
  - Fluid retention [None]
  - Dyspnoea [None]
  - Loss of consciousness [None]
  - Pleural effusion [None]
  - Atrial fibrillation [None]
  - Cardiac failure congestive [None]
  - Cardiomegaly [None]
  - Muscle atrophy [None]
  - Renal impairment [None]
  - Hepatic enzyme increased [None]
  - Pancreatitis [None]
  - Impaired gastric emptying [None]
  - Blister [None]

NARRATIVE: CASE EVENT DATE: 20160101
